FAERS Safety Report 21444803 (Version 1)
Quarter: 2022Q4

REPORT INFORMATION
  Report Type: Report from Study
  Country: US (occurrence: US)
  Receive Date: 20221012
  Receipt Date: 20221012
  Transmission Date: 20230113
  Serious: Yes (Other)
  Sender: FDA-Public Use
  Company Number: US-NOVARTISTESTPH-NVSC2022US227109

PATIENT

DRUGS (1)
  1. PIQRAY [Suspect]
     Active Substance: ALPELISIB
     Indication: Product used for unknown indication
     Dosage: 300 MG, OTHER, (TAKE 300 MG (TWO 150 MG TABLETS) BY MOUTH DAILY).
     Route: 048

REACTIONS (4)
  - Blood glucose increased [Unknown]
  - Hypoaesthesia [Unknown]
  - Emotional disorder [Unknown]
  - Depression [Unknown]
